FAERS Safety Report 6159104-8 (Version None)
Quarter: 2009Q2

REPORT INFORMATION
  Report Type: 
  Country: None (occurrence: None)
  Receive Date: 20090417
  Receipt Date: 20090415
  Transmission Date: 20091009
  Serious: Yes (Other)
  Sender: FDA-Public Use
  Company Number: BE-WYE-G03515509

PATIENT

DRUGS (1)
  1. REFACTO [Suspect]

REACTIONS (1)
  - FACTOR VIII INHIBITION [None]
